FAERS Safety Report 6024721-2 (Version None)
Quarter: 2008Q4

REPORT INFORMATION
  Report Type: 
  Country: None (occurrence: None)
  Receive Date: 20081231
  Receipt Date: 20081223
  Transmission Date: 20090506
  Serious: Yes (Death)
  Sender: FDA-Public Use
  Company Number: US-ASTRAZENECA-2008AC03269

PATIENT
  Age: 39 Year
  Sex: Female

DRUGS (6)
  1. QUETIAPINE [Suspect]
     Route: 048
  2. METHADON HCL TAB [Suspect]
     Route: 048
  3. CYCLOBENZAPRINE HCL [Suspect]
     Route: 048
  4. BUSPIRONE [Suspect]
     Route: 048
  5. HYDROXYZINE [Suspect]
     Route: 048
  6. ETHANOL [Suspect]
     Route: 048

REACTIONS (2)
  - CARDIO-RESPIRATORY ARREST [None]
  - COMPLETED SUICIDE [None]
